FAERS Safety Report 16717137 (Version 1)
Quarter: 2019Q3

REPORT INFORMATION
  Report Type: Spontaneous
  Country: GR (occurrence: US)
  Receive Date: 20190819
  Receipt Date: 20190819
  Transmission Date: 20191005
  Serious: Yes (Other)
  Sender: FDA-Public Use
  Company Number: GR-SHIRE-GR201926055

PATIENT

DRUGS (4)
  1. CYCLOPHOSPHAMIDE. [Suspect]
     Active Substance: CYCLOPHOSPHAMIDE
     Dosage: UNK
     Route: 042
  2. METHYLPREDNISOLONE. [Suspect]
     Active Substance: METHYLPREDNISOLONE
     Indication: HENOCH-SCHONLEIN PURPURA
     Dosage: 1 G, UNK 3 DAYS
     Route: 065
  3. CYCLOPHOSPHAMIDE. [Suspect]
     Active Substance: CYCLOPHOSPHAMIDE
     Indication: HENOCH-SCHONLEIN PURPURA
     Dosage: 750 MG, UNK
     Route: 042
  4. HUMAN NORMAL IMMUNOGLOBULIN [Suspect]
     Active Substance: HUMAN IMMUNOGLOBULIN G
     Indication: HENOCH-SCHONLEIN PURPURA
     Dosage: UNK
     Route: 042

REACTIONS (4)
  - Cellulitis [Unknown]
  - Intentional product use issue [Unknown]
  - Herpes zoster [Unknown]
  - Off label use [Unknown]
